FAERS Safety Report 8883384 (Version 1)
Quarter: 2012Q4

REPORT INFORMATION
  Report Type: 
  Country: US (occurrence: US)
  Receive Date: 20121102
  Receipt Date: 20121102
  Transmission Date: 20130627
  Serious: No
  Sender: FDA-Public Use
  Company Number: US-009507513-1210USA014031

PATIENT
  Sex: Female

DRUGS (4)
  1. PEGINTRON [Suspect]
     Dosage: 0.4 ml, qw
     Route: 058
  2. CALCIUM (UNSPECIFIED) [Concomitant]
  3. PROCRIT [Concomitant]
  4. TYLENOL [Concomitant]

REACTIONS (6)
  - Anaemia [Unknown]
  - Headache [Unknown]
  - Swelling [Unknown]
  - Pain in extremity [Unknown]
  - Nausea [Unknown]
  - Dysgeusia [Unknown]
